FAERS Safety Report 5826914-3 (Version None)
Quarter: 2008Q3

REPORT INFORMATION
  Report Type: 
  Country: None (occurrence: None)
  Receive Date: 20080729
  Receipt Date: 20080729
  Transmission Date: 20090109
  Serious: Yes (Other)
  Sender: FDA-Public Use
  Company Number: None

PATIENT
  Age: 64 Year
  Sex: Female

DRUGS (17)
  1. CELEBREX [Suspect]
     Indication: OSTEOARTHRITIS
     Dosage: 400 MG BID PO
     Route: 048
     Dates: start: 20030501, end: 20080728
  2. EVISTA [Suspect]
     Indication: BONE DISORDER
     Dosage: 60 MG QD PO
     Route: 048
     Dates: start: 20020901, end: 20080615
  3. EVISTA [Suspect]
     Indication: BREAST CANCER
     Dosage: 60 MG QD PO
     Route: 048
     Dates: start: 20020901, end: 20080615
  4. EVISTA [Suspect]
     Indication: PROPHYLAXIS
     Dosage: 60 MG QD PO
     Route: 048
     Dates: start: 20020901, end: 20080615
  5. CRESTOR [Concomitant]
  6. ASPIRIN [Concomitant]
  7. CYMBALTA [Concomitant]
  8. DIGESTIVE ADVANTAGE [Concomitant]
  9. GAS DEFENSE [Concomitant]
  10. MAXZIDE [Concomitant]
  11. POTASSIUM SUPPLEMENT [Concomitant]
  12. CALCIUM PLUS D [Concomitant]
  13. CLONAZEPAM [Concomitant]
  14. OXYCODONE HCL [Concomitant]
  15. POLYETHYLENE GLYCOL [Concomitant]
  16. EYE DROPS [Concomitant]
  17. FUROSEMIDE [Concomitant]

REACTIONS (3)
  - OEDEMA PERIPHERAL [None]
  - PITTING OEDEMA [None]
  - WEIGHT INCREASED [None]
